FAERS Safety Report 5508662-2 (Version None)
Quarter: 2007Q4

REPORT INFORMATION
  Report Type: 
  Country: None (occurrence: None)
  Receive Date: 20071105
  Receipt Date: 20071022
  Transmission Date: 20080405
  Serious: Yes (Other)
  Sender: FDA-Public Use
  Company Number: PHMT2007CA02137

PATIENT
  Age: 86 Year
  Sex: Female

DRUGS (3)
  1. VISUDYNE [Suspect]
     Dates: start: 20071010, end: 20071010
  2. AVASTIN [Suspect]
     Dates: start: 20071010, end: 20071010
  3. ASPIRIN [Concomitant]

REACTIONS (1)
  - BLINDNESS [None]
